FAERS Safety Report 23557566 (Version 3)
Quarter: 2024Q2

REPORT INFORMATION
  Report Type: Spontaneous
  Country: US (occurrence: US)
  Receive Date: 20240223
  Receipt Date: 20240531
  Transmission Date: 20240716
  Serious: Yes (Hospitalization)
  Sender: FDA-Public Use
  Company Number: US-UCBSA-2023051085

PATIENT
  Sex: Female
  Weight: 83.9 kg

DRUGS (2)
  1. CIMZIA [Suspect]
     Active Substance: CERTOLIZUMAB PEGOL
     Indication: Ankylosing spondylitis
     Dosage: 200 MILLIGRAM, EV 2 WEEKS(QOW)
     Route: 058
     Dates: start: 202308
  2. VITAMINS NOS [Concomitant]
     Active Substance: VITAMINS
     Indication: Pregnancy
     Dosage: UNK

REACTIONS (8)
  - Hospitalisation [Not Recovered/Not Resolved]
  - Illness [Unknown]
  - Pharyngitis streptococcal [Unknown]
  - Influenza [Unknown]
  - Tonsillitis [Unknown]
  - Urinary tract infection [Unknown]
  - Product dose omission issue [Unknown]
  - Maternal exposure during pregnancy [Unknown]

NARRATIVE: CASE EVENT DATE: 20230101
